FAERS Safety Report 15190810 (Version 2)
Quarter: 2019Q1

REPORT INFORMATION
  Report Type: Spontaneous
  Country: JP (occurrence: JP)
  Receive Date: 20180724
  Receipt Date: 20190313
  Transmission Date: 20190417
  Serious: Yes (Hospitalization, Other)
  Sender: FDA-Public Use
  Company Number: JP-SA-2018SA195352

PATIENT
  Sex: Male

DRUGS (13)
  1. TRAMADOL + ACETAMINOFEN MK [Interacting]
     Active Substance: ACETAMINOPHEN\TRAMADOL
     Indication: PAIN MANAGEMENT
     Dosage: UNK
     Route: 048
  2. TRIAZOLAM. [Interacting]
     Active Substance: TRIAZOLAM
     Dosage: UNK
     Route: 048
  3. ZOTEPINE [Interacting]
     Active Substance: ZOTEPINE
     Indication: PRODUCT USED FOR UNKNOWN INDICATION
     Dosage: UNK
     Route: 048
  4. BUPRENORPHINE. [Interacting]
     Active Substance: BUPRENORPHINE
     Dosage: 20 MG, QW
     Route: 061
  5. ZOPICLONE [Interacting]
     Active Substance: ZOPICLONE
  6. BUPRENORPHINE. [Interacting]
     Active Substance: BUPRENORPHINE
     Dosage: 10 MG, QW
     Route: 061
  7. VONOPRAZAN [Interacting]
     Active Substance: VONOPRAZAN
     Indication: PRODUCT USED FOR UNKNOWN INDICATION
     Dosage: UNK
     Route: 048
  8. FLUVOXAMINE [Interacting]
     Active Substance: FLUVOXAMINE
     Indication: PRODUCT USED FOR UNKNOWN INDICATION
     Dosage: UNK
     Route: 048
  9. ETHYL LOFLAZEPATE [Interacting]
     Active Substance: ETHYL LOFLAZEPATE
     Indication: PRODUCT USED FOR UNKNOWN INDICATION
     Dosage: UNK
     Route: 048
  10. BUPRENORPHINE. [Interacting]
     Active Substance: BUPRENORPHINE
     Indication: MUSCULOSKELETAL PAIN
     Dosage: 5 MG, QW, ADHESIVE PATCHES
     Route: 061
  11. ZOLPIDEM TARTRATE. [Suspect]
     Active Substance: ZOLPIDEM TARTRATE
     Dosage: UNK
     Route: 048
  12. QUETIAPINE FUMARATE. [Interacting]
     Active Substance: QUETIAPINE FUMARATE
     Dosage: 500 MG, QD
     Route: 048
  13. BROTIZOLAM [Interacting]
     Active Substance: BROTIZOLAM
     Indication: PRODUCT USED FOR UNKNOWN INDICATION
     Dosage: UNK
     Route: 048

REACTIONS (9)
  - Drug interaction [Unknown]
  - Decreased appetite [Recovering/Resolving]
  - Cellulitis [Recovering/Resolving]
  - Renal impairment [Recovering/Resolving]
  - Urine output decreased [Recovering/Resolving]
  - Blood creatine phosphokinase increased [Recovering/Resolving]
  - Inflammation [Recovering/Resolving]
  - Rhabdomyolysis [Recovering/Resolving]
  - Malaise [Recovering/Resolving]
